FAERS Safety Report 14615360 (Version 4)
Quarter: 2018Q2

REPORT INFORMATION
  Report Type: Spontaneous
  Country: JP (occurrence: JP)
  Receive Date: 20180308
  Receipt Date: 20180524
  Transmission Date: 20180711
  Serious: Yes (Other)
  Sender: FDA-Public Use
  Company Number: JP-TAKEDA-2018TJP006534

PATIENT
  Age: 59 Year
  Sex: Female
  Weight: 78 kg

DRUGS (11)
  1. P-TOL [Concomitant]
     Active Substance: FERRIC OXYHYDROXIDE
     Indication: HYPERPHOSPHATAEMIA
     Dosage: 500 MG, TID
     Route: 048
     Dates: start: 20160817
  2. CALTAN [Concomitant]
     Active Substance: CALCIUM CARBONATE
     Indication: HYPERPHOSPHATAEMIA
     Dosage: 1000 MG, TID
     Route: 048
     Dates: end: 20161004
  3. FEBURIC [Concomitant]
     Active Substance: FEBUXOSTAT
     Indication: HYPERURICAEMIA
     Dosage: 10 MG, QD
     Route: 048
  4. BONVIVA [Concomitant]
     Active Substance: IBANDRONATE SODIUM
     Indication: OSTEOPOROSIS
     Dosage: 1 MG, MONTHLY
     Route: 042
     Dates: start: 20170224
  5. ETELCALCETIDE HYDROCHLORIDE [Concomitant]
     Active Substance: ETELCALCETIDE HYDROCHLORIDE
     Indication: HYPERPARATHYROIDISM SECONDARY
     Dosage: 5 MG, 3/WEEK
     Route: 042
     Dates: start: 20170612
  6. L CARTIN FF [Concomitant]
     Active Substance: LEVOCARNITINE
     Indication: HYPOCARNITINAEMIA
     Dosage: 1000 MG, 3/WEEK
     Route: 042
  7. TAKEPRON OD TABLETS 15 [Suspect]
     Active Substance: LANSOPRAZOLE
     Indication: GASTROOESOPHAGEAL REFLUX DISEASE
     Dosage: 15 MG, QD
     Route: 048
     Dates: start: 20160406, end: 20180227
  8. RENAGEL [Concomitant]
     Active Substance: SEVELAMER HYDROCHLORIDE
     Indication: HYPERPHOSPHATAEMIA
     Dosage: 500 MG, TID
     Route: 048
     Dates: end: 20160816
  9. REGPARA [Concomitant]
     Active Substance: CINACALCET HYDROCHLORIDE
     Indication: HYPERPARATHYROIDISM SECONDARY
     Dosage: 25 MG, QD
     Route: 048
     Dates: end: 20170606
  10. TAMOXIFEN                          /00388702/ [Concomitant]
     Active Substance: TAMOXIFEN
     Indication: POSTOPERATIVE CARE
     Dosage: 20 MG, QD
     Route: 048
     Dates: start: 201703, end: 20171214
  11. FEMARA [Concomitant]
     Active Substance: LETROZOLE
     Indication: POSTOPERATIVE CARE
     Dosage: 2.5 MG, QD
     Route: 048
     Dates: start: 20171215

REACTIONS (2)
  - Breast cancer recurrent [Unknown]
  - Interstitial lung disease [Not Recovered/Not Resolved]

NARRATIVE: CASE EVENT DATE: 20180223
